FAERS Safety Report 9525780 (Version 1)
Quarter: 2013Q1

REPORT INFORMATION
  Report Type: Spontaneous
  Country: US (occurrence: None)
  Receive Date: 20130314
  Receipt Date: 20130314
  Transmission Date: 20140127
  Serious: Yes (Other)
  Sender: FDA-Public Use
  Company Number: 1302USA003830

PATIENT
  Sex: Female

DRUGS (3)
  1. VICTRELIS [Suspect]
     Indication: HEPATITIS C
     Dosage: 200 MG, 4 CAPSULES EVERY 8 HOURS, ORAL
     Dates: start: 20121031
  2. PEGASYS [Suspect]
     Indication: HEPATITIS C
     Dates: start: 20121015
  3. RIBASPHERE (RIBAVIRIN) [Suspect]
     Indication: HEPATITIS C
     Dates: start: 20121015

REACTIONS (1)
  - Therapy responder [None]
